FAERS Safety Report 9543001 (Version 2)
Quarter: 2014Q1

REPORT INFORMATION
  Report Type: Spontaneous
  Country: US (occurrence: None)
  Receive Date: 20130524
  Receipt Date: 20130724
  Transmission Date: 20141002
  Serious: Yes (Other)
  Sender: FDA-Public Use
  Company Number: PHEH2013US004061

PATIENT
  Age: 36 Year
  Sex: Female

DRUGS (25)
  1. GILENYA (FINGOLIMOD) CAPSULE, 0.5MG [Suspect]
     Indication: MULTIPLE SCLEROSIS
     Route: 048
     Dates: start: 201110, end: 20130123
  2. VERAPAMIL [Concomitant]
  3. CEPHALEXIN [Concomitant]
  4. ZOLPIDEM TARTRATE [Concomitant]
  5. TYSABRI (NATALIZUMAB) [Concomitant]
  6. ZOLEDRONIC ACID [Concomitant]
  7. AMITRIPTYLINE HCL (AMITRYPTYLINE HYDROCHLORIDE) [Concomitant]
  8. CALCIUM CARBONATE AND VITAMIN D (CALCIUM CARBONATE, COLECALCIFEROL) [Concomitant]
  9. POLYETHYLENE GLYCOL (MACROGOL) [Concomitant]
  10. QUETIAPINE FUMARATE [Concomitant]
  11. DULOXETINE HYDROCHLORIDE [Concomitant]
  12. NAPROXEN [Concomitant]
  13. OMEPRAZOLE [Concomitant]
  14. TRAZODONE HCL (TRAZODONE HYDROCHLORIDE) [Concomitant]
  15. ELETRIPTAN HYDROBROMIDE [Concomitant]
  16. ONDANSETRON/ONDANSETRON HYDROCHLORIDE [Concomitant]
  17. PRENATAL VITAMINS (ASCORBIC ACID, BIOTIN, MINERALS NOS, NICOTINIC ACID, RETINOL, TOCOPHEROL, VITAMIN B NOS, VITAMIN D NOS) [Concomitant]
  18. VITAMIN D3 (COLECALCIFEROL) [Concomitant]
  19. IRON [Concomitant]
  20. DOCUSATE SODIUM [Concomitant]
  21. ACETAMINOPHEN (PARACETAMOL) [Concomitant]
  22. BISACODYL [Concomitant]
  23. RIFAXIMIN [Concomitant]
  24. CELECOXIB [Concomitant]
  25. NAPROXEN SODIUM [Concomitant]

REACTIONS (2)
  - Blood pressure increased [None]
  - Hypertension [None]
